FAERS Safety Report 13780907 (Version 2)
Quarter: 2017Q3

REPORT INFORMATION
  Report Type: Spontaneous
  Country: TN (occurrence: TN)
  Receive Date: 20170724
  Receipt Date: 20170906
  Transmission Date: 20171127
  Serious: Yes (Other)
  Sender: FDA-Public Use
  Company Number: TN-CONCORDIA PHARMACEUTICALS INC.-E2B_00008261

PATIENT
  Age: 5 Year
  Sex: Male
  Weight: 14.5 kg

DRUGS (17)
  1. CYCLOPHOSPHAMIDE. [Suspect]
     Active Substance: CYCLOPHOSPHAMIDE
     Dosage: DAY 1
  2. CYCLOPHOSPHAMIDE. [Suspect]
     Active Substance: CYCLOPHOSPHAMIDE
     Dosage: TWICE A DAY ON DAYS 2-4
  3. PREDNISOLONE. [Suspect]
     Active Substance: PREDNISOLONE
     Dosage: DAY 1 TO 5
  4. METHOTREXATE. [Suspect]
     Active Substance: METHOTREXATE
     Route: 037
  5. CARBOPLATIN. [Suspect]
     Active Substance: CARBOPLATIN
     Dosage: WITH THE DOSE REDUCED TO TWO-THIRDS
  6. VINCRISTINE [Suspect]
     Active Substance: VINCRISTINE
     Dosage: DAY 1
  7. METHOTREXATE. [Suspect]
     Active Substance: METHOTREXATE
     Dosage: 3 G/M2 ON DAY 1
  8. PREDNISOLONE. [Suspect]
     Active Substance: PREDNISOLONE
     Dosage: DAYS 17
  9. METHOTREXATE. [Suspect]
     Active Substance: METHOTREXATE
     Dosage: 3 G/M2 ON DAY 1
  10. CYTARABINE. [Suspect]
     Active Substance: CYTARABINE
  11. CYTARABINE. [Suspect]
     Active Substance: CYTARABINE
     Dosage: PER DAY FROM DAYS 2 TO 6
  12. METHOTREXATE. [Suspect]
     Active Substance: METHOTREXATE
     Route: 037
  13. IFOSFAMIDE. [Suspect]
     Active Substance: IFOSFAMIDE
     Dosage: WITH THE DOSE REDUCED TO TWO-THIRDS
  14. ETOPOSIDE. [Suspect]
     Active Substance: ETOPOSIDE
     Dosage: WITH THE DOSE REDUCED TO TWO-THIRDS
  15. VINCRISTINE [Suspect]
     Active Substance: VINCRISTINE
     Dosage: DAY 1
  16. METHOTREXATE. [Suspect]
     Active Substance: METHOTREXATE
     Route: 037
  17. DOXORUBICIN [Suspect]
     Active Substance: DOXORUBICIN
     Dosage: DAY 2

REACTIONS (3)
  - Bone marrow failure [Recovered/Resolved]
  - Mucosal inflammation [Unknown]
  - Toxicity to various agents [Unknown]
